FAERS Safety Report 13036906 (Version 1)
Quarter: 2016Q4

REPORT INFORMATION
  Report Type: Spontaneous
  Country: GB (occurrence: GB)
  Receive Date: 20161216
  Receipt Date: 20161216
  Transmission Date: 20170207
  Serious: Yes (Disabling)
  Sender: FDA-Public Use
  Company Number: PHHY2016GB168303

PATIENT
  Age: 52 Year
  Sex: Female
  Weight: 41 kg

DRUGS (1)
  1. BUPRENORPHINE. [Suspect]
     Active Substance: BUPRENORPHINE
     Indication: PRODUCT USED FOR UNKNOWN INDICATION
     Route: 065
     Dates: start: 20120403

REACTIONS (5)
  - Rash pruritic [Recovered/Resolved]
  - Vomiting [Recovered/Resolved]
  - Nausea [Recovered/Resolved]
  - Rash macular [Unknown]
  - Product substitution issue [Unknown]

NARRATIVE: CASE EVENT DATE: 20161124
